FAERS Safety Report 13380759 (Version 2)
Quarter: 2017Q2

REPORT INFORMATION
  Report Type: Spontaneous
  Country: DE (occurrence: DE)
  Receive Date: 20170329
  Receipt Date: 20170410
  Transmission Date: 20170830
  Serious: Yes (Other)
  Sender: FDA-Public Use
  Company Number: DE-SUN PHARMACEUTICAL INDUSTRIES LTD-2017R1-137057

PATIENT
  Age: 72 Year
  Sex: Male
  Weight: 105 kg

DRUGS (2)
  1. METAMIZOLE [Suspect]
     Active Substance: METAMIZOLE
     Indication: PROCEDURAL PAIN
     Dosage: 500 MG, QID
     Route: 048
     Dates: start: 20170120, end: 20170303
  2. CLINDAMYCIN. [Suspect]
     Active Substance: CLINDAMYCIN
     Indication: INTERVERTEBRAL DISCITIS
     Dosage: 600 MG, TID
     Route: 048
     Dates: start: 20170126, end: 20170303

REACTIONS (3)
  - Leukopenia [Recovered/Resolved]
  - Lymphocyte count decreased [Recovered/Resolved]
  - Neutropenia [Recovered/Resolved]

NARRATIVE: CASE EVENT DATE: 20170303
